FAERS Safety Report 14205460 (Version 1)
Quarter: 2017Q4

REPORT INFORMATION
  Report Type: Spontaneous
  Country: FR (occurrence: FR)
  Receive Date: 20171120
  Receipt Date: 20171120
  Transmission Date: 20180321
  Serious: Yes (Other)
  Sender: FDA-Public Use
  Company Number: FR-ASTRAZENECA-2017SF17550

PATIENT
  Sex: Female

DRUGS (5)
  1. XEROQUEL [Suspect]
     Active Substance: QUETIAPINE FUMARATE
     Route: 048
  2. ALPRAZOLAM. [Concomitant]
     Active Substance: ALPRAZOLAM
  3. SEROPLEX [Concomitant]
     Active Substance: ESCITALOPRAM OXALATE
  4. IMOVANE [Concomitant]
     Active Substance: ZOPICLONE
  5. MIRTAZAPINE. [Concomitant]
     Active Substance: MIRTAZAPINE

REACTIONS (3)
  - Dysphagia [Unknown]
  - Gastric cancer [Unknown]
  - Wrong technique in product usage process [Unknown]
